FAERS Safety Report 4423532-9 (Version None)
Quarter: 2004Q3

REPORT INFORMATION
  Report Type: 
  Country: None (occurrence: None)
  Receive Date: 20040805
  Receipt Date: 20040723
  Transmission Date: 20050211
  Serious: No
  Sender: FDA-Public Use
  Company Number: 04H-062-0268369-00

PATIENT
  Age: 56 Year
  Sex: Male
  Weight: 68 kg

DRUGS (5)
  1. SUCCINYLCHOLINE CHLORIDE [Suspect]
     Indication: ANAESTHESIA
     Dosage: 100 MG
  2. ETOMIDATE [Suspect]
     Indication: ANAESTHESIA
     Dosage: 20 MG
  3. FENTANYL [Suspect]
     Indication: ANAESTHESIA
     Dosage: 0.2MG
  4. PANCURONIUM [Concomitant]
  5. MORPHINE SULFATE [Concomitant]

REACTIONS (3)
  - ANAESTHETIC COMPLICATION CARDIAC [None]
  - CARDIAC ARREST [None]
  - DRUG INTERACTION [None]
